FAERS Safety Report 12800918 (Version 1)
Quarter: 2016Q4

REPORT INFORMATION
  Report Type: Spontaneous
  Country: US (occurrence: US)
  Receive Date: 20161002
  Receipt Date: 20161002
  Transmission Date: 20170207
  Serious: No
  Sender: FDA-Public Use
  Company Number: US-ASTRAZENECA-2016SF00753

PATIENT

DRUGS (2)
  1. PROAIR HFA [Concomitant]
     Active Substance: ALBUTEROL SULFATE
  2. TUDORZA PRESSAIR [Suspect]
     Active Substance: ACLIDINIUM BROMIDE
     Dosage: UNKNOWN
     Route: 055

REACTIONS (4)
  - Anxiety [Unknown]
  - Rheumatoid arthritis [Unknown]
  - Fall [Unknown]
  - Chronic obstructive pulmonary disease [Unknown]
